FAERS Safety Report 14475284 (Version 2)
Quarter: 2018Q3

REPORT INFORMATION
  Report Type: Report from Study
  Country: DE (occurrence: DE)
  Receive Date: 20180201
  Receipt Date: 20180820
  Transmission Date: 20181010
  Serious: Yes (Hospitalization, Other)
  Sender: FDA-Public Use
  Company Number: DE-TEVA-2018-DE-850997

PATIENT
  Sex: Female

DRUGS (16)
  1. RITUXIMAB. [Suspect]
     Active Substance: RITUXIMAB
     Indication: RHEUMATOID ARTHRITIS
     Route: 058
     Dates: start: 201001
  2. JODID [Concomitant]
     Active Substance: IODINE
  3. RITUXIMAB. [Suspect]
     Active Substance: RITUXIMAB
     Route: 058
     Dates: start: 201009
  4. RITUXIMAB. [Suspect]
     Active Substance: RITUXIMAB
     Route: 058
     Dates: start: 20090311
  5. SOTALEX [Concomitant]
     Active Substance: SOTALOL
  6. BENDAMUSTINA [Concomitant]
     Active Substance: BENDAMUSTINE
  7. METHOTREXATE. [Suspect]
     Active Substance: METHOTREXATE
     Indication: RHEUMATOID ARTHRITIS
     Route: 048
     Dates: start: 200903
  8. RITUXIMAB. [Suspect]
     Active Substance: RITUXIMAB
     Route: 058
     Dates: start: 20170123
  9. METHOTREXATE. [Suspect]
     Active Substance: METHOTREXATE
     Route: 048
  10. LISINOPRIL. [Concomitant]
     Active Substance: LISINOPRIL
  11. NOVODIGAL [Concomitant]
  12. PREDNISOLONE. [Suspect]
     Active Substance: PREDNISOLONE
     Indication: RHEUMATOID ARTHRITIS
     Route: 065
     Dates: start: 1999
  13. RITUXIMAB. [Suspect]
     Active Substance: RITUXIMAB
     Route: 058
     Dates: start: 201106
  14. RITUXIMAB. [Suspect]
     Active Substance: RITUXIMAB
     Route: 058
     Dates: start: 201202
  15. BONVIVA [Concomitant]
     Active Substance: IBANDRONATE SODIUM
     Route: 065
  16. MARCUMAR [Concomitant]
     Active Substance: PHENPROCOUMON

REACTIONS (3)
  - Respiratory tract infection [Recovered/Resolved]
  - Non-Hodgkin^s lymphoma recurrent [Unknown]
  - Non-Hodgkin^s lymphoma [Not Recovered/Not Resolved]

NARRATIVE: CASE EVENT DATE: 20110220
